FAERS Safety Report 11448069 (Version 1)
Quarter: 2015Q3

REPORT INFORMATION
  Report Type: Spontaneous
  Country: US (occurrence: US)
  Receive Date: 20150831
  Receipt Date: 20150831
  Transmission Date: 20151125
  Serious: No
  Sender: FDA-Public Use
  Company Number: US-ELI_LILLY_AND_COMPANY-US200905005606

PATIENT
  Age: 33 Year
  Sex: Male

DRUGS (2)
  1. CYMBALTA [Suspect]
     Active Substance: DULOXETINE HYDROCHLORIDE
     Dates: start: 20090517
  2. CYMBALTA [Suspect]
     Active Substance: DULOXETINE HYDROCHLORIDE
     Indication: NEURALGIA
     Dosage: 60 MG, UNK
     Dates: start: 200904, end: 200904

REACTIONS (7)
  - Disturbance in attention [Recovered/Resolved]
  - Fatigue [Not Recovered/Not Resolved]
  - Abnormal behaviour [Recovered/Resolved]
  - Stereotypy [Recovered/Resolved]
  - Asthenia [Not Recovered/Not Resolved]
  - Insomnia [Recovered/Resolved]
  - Thinking abnormal [Recovered/Resolved]

NARRATIVE: CASE EVENT DATE: 200905
